FAERS Safety Report 6506666-4 (Version None)
Quarter: 2009Q4

REPORT INFORMATION
  Report Type: 
  Country: None (occurrence: None)
  Receive Date: 20091221
  Receipt Date: 20091211
  Transmission Date: 20100525
  Serious: Yes (Hospitalization, Other)
  Sender: FDA-Public Use
  Company Number: US-AMGEN-QUU373304

PATIENT
  Sex: Male
  Weight: 57.2 kg

DRUGS (5)
  1. EPOGEN [Suspect]
     Indication: DIALYSIS
     Route: 058
  2. PROGRAF [Concomitant]
  3. PREDNISONE [Concomitant]
  4. NEXIUM [Concomitant]
  5. NORVASC [Concomitant]

REACTIONS (2)
  - APLASIA PURE RED CELL [None]
  - RENAL TRANSPLANT [None]
